FAERS Safety Report 6704227-5 (Version None)
Quarter: 2010Q2

REPORT INFORMATION
  Report Type: 
  Country: None (occurrence: None)
  Receive Date: 20100430
  Receipt Date: 20100419
  Transmission Date: 20101027
  Serious: Yes (Other)
  Sender: FDA-Public Use
  Company Number: US-PFIZER INC-2010049949

PATIENT
  Sex: Female
  Weight: 68.027 kg

DRUGS (1)
  1. DILANTIN [Suspect]
     Indication: CONVULSION
     Dosage: 300MG MORNING, 200MG AT NIGHT
     Route: 048

REACTIONS (2)
  - LABORATORY TEST ABNORMAL [None]
  - MYOCARDIAL INFARCTION [None]
